FAERS Safety Report 19133605 (Version 2)
Quarter: 2021Q2

REPORT INFORMATION
  Report Type: Report from Study
  Country: US (occurrence: US)
  Receive Date: 20210414
  Receipt Date: 20210423
  Transmission Date: 20210717
  Serious: No
  Sender: FDA-Public Use
  Company Number: US-BIOVITRUM-2021US3535

PATIENT
  Age: 16 Year
  Sex: Female

DRUGS (1)
  1. KINERET [Suspect]
     Active Substance: ANAKINRA
     Indication: PYREXIA
     Route: 058
     Dates: start: 20210321

REACTIONS (6)
  - Blister [Not Recovered/Not Resolved]
  - Hypersensitivity [Unknown]
  - Urticaria [Not Recovered/Not Resolved]
  - Dyspnoea [Unknown]
  - Injection site pain [Unknown]
  - Off label use [Unknown]

NARRATIVE: CASE EVENT DATE: 20210321
